FAERS Safety Report 5269080-8 (Version None)
Quarter: 2007Q1

REPORT INFORMATION
  Report Type: 
  Country: None (occurrence: None)
  Receive Date: 20070319
  Receipt Date: 20070305
  Transmission Date: 20070707
  Serious: Yes (Hospitalization, Disabling)
  Sender: FDA-Public Use
  Company Number: US-ELI_LILLY_AND_COMPANY-US200703000943

PATIENT
  Age: 39 Year
  Sex: Female
  Weight: 58.956 kg

DRUGS (1)
  1. CYMBALTA [Suspect]
     Indication: DEPRESSION
     Dosage: 60 MG, DAILY (1/D)
     Dates: start: 20050901, end: 20051212

REACTIONS (6)
  - CEREBROVASCULAR ACCIDENT [None]
  - COMMUNICATION DISORDER [None]
  - DELUSION [None]
  - DYSARTHRIA [None]
  - INSOMNIA [None]
  - PSYCHOTIC DISORDER [None]
